FAERS Safety Report 8493232-7 (Version None)
Quarter: 2012Q3

REPORT INFORMATION
  Report Type: 
  Country: None (occurrence: None)
  Receive Date: 20120706
  Receipt Date: 20120703
  Transmission Date: 20120928
  Serious: Yes (Other)
  Sender: FDA-Public Use
  Company Number: PHEH2011US012769

PATIENT
  Sex: Female

DRUGS (5)
  1. JANUVIA [Concomitant]
     Indication: DIABETES MELLITUS
     Dosage: 100 MG, QD
     Route: 048
     Dates: start: 20110601
  2. NUVIGIL [Concomitant]
     Dosage: UNK UKN, UNK
  3. GILENYA [Suspect]
     Indication: MULTIPLE SCLEROSIS
     Dosage: 0.5 MG, DAILY
     Route: 048
     Dates: start: 20111208
  4. SAPHRIS [Concomitant]
     Indication: BIPOLAR DISORDER
     Dosage: 5 MG, QD
     Route: 048
     Dates: start: 20111102
  5. ZOLOFT [Concomitant]
     Indication: DEPRESSION
     Dosage: 200 MG, QD
     Route: 048
     Dates: start: 20110806

REACTIONS (10)
  - DECREASED INTEREST [None]
  - FALL [None]
  - DEPRESSION [None]
  - CHEST DISCOMFORT [None]
  - ABDOMINAL PAIN [None]
  - FATIGUE [None]
  - PAIN IN JAW [None]
  - APATHY [None]
  - SKIN INJURY [None]
  - URINARY TRACT INFECTION [None]
